FAERS Safety Report 9656819 (Version 1)
Quarter: 2013Q4

REPORT INFORMATION
  Report Type: Spontaneous
  Country: GB (occurrence: None)
  Receive Date: 20131028
  Receipt Date: 20131028
  Transmission Date: 20140711
  Serious: Yes (Disabling)
  Sender: FDA-Public Use
  Company Number: AUR-APL-2013-08792

PATIENT
  Age: 90 Year
  Sex: Female

DRUGS (10)
  1. CIPROFLOXACIN [Suspect]
     Indication: DIVERTICULITIS
     Route: 048
     Dates: start: 20130920, end: 20130926
  2. ALLOPURINOL [Concomitant]
  3. ATORVASTATIN (ATORVASTATIN) [Concomitant]
  4. CETIRIZINE (CETIRIZINE) [Concomitant]
  5. DOXAZOSIN (DOXAZOSIN) [Concomitant]
  6. FELODIPINE (FELODIPINE) [Concomitant]
  7. LISINOPRIL (LISINOPRIL) [Concomitant]
  8. METRONIDAZOLE (MERONIDAZOLE) [Concomitant]
  9. PREDNISOLONE (PREDNISOLONE) [Concomitant]
  10. WARFARIN (WARFARIN) [Concomitant]

REACTIONS (1)
  - Tendonitis [None]
